FAERS Safety Report 22198238 (Version 1)
Quarter: 2023Q2

REPORT INFORMATION
  Report Type: Spontaneous
  Country: US (occurrence: US)
  Receive Date: 20230411
  Receipt Date: 20230411
  Transmission Date: 20230722
  Serious: No
  Sender: FDA-Public Use
  Company Number: US-Kiniksa Pharmaceuticals Ltd.-2022KPU000653

PATIENT
  Age: 36 Year
  Sex: Female

DRUGS (1)
  1. ARCALYST [Suspect]
     Active Substance: RILONACEPT
     Indication: Pericarditis
     Route: 058
     Dates: start: 202204

REACTIONS (4)
  - Alanine aminotransferase increased [Unknown]
  - Aspartate aminotransferase increased [Unknown]
  - White blood cell count decreased [Unknown]
  - Platelet count decreased [Unknown]

NARRATIVE: CASE EVENT DATE: 20220811
